FAERS Safety Report 6947416-7 (Version None)
Quarter: 2010Q3

REPORT INFORMATION
  Report Type: 
  Country: None (occurrence: None)
  Receive Date: 20100827
  Receipt Date: 20090911
  Transmission Date: 20110219
  Serious: No
  Sender: FDA-Public Use
  Company Number: US-ABBOTT-09P-163-0597165-00

PATIENT
  Sex: Male
  Weight: 127.12 kg

DRUGS (13)
  1. NIASPAN [Suspect]
     Indication: BLOOD TRIGLYCERIDES INCREASED
     Dosage: 2-500 MG TABLETS, ONCE
     Route: 048
     Dates: start: 20090909, end: 20090910
  2. NIASPAN [Suspect]
     Indication: HIGH DENSITY LIPOPROTEIN DECREASED
  3. ASPIRIN [Concomitant]
     Indication: CARDIOVASCULAR EVENT PROPHYLAXIS
     Route: 048
  4. LISINOPRIL [Concomitant]
     Indication: HYPERTENSION
     Route: 048
  5. LISINOPRIL [Concomitant]
     Indication: PROPHYLAXIS
  6. LORATIDNE [Concomitant]
     Indication: HYPERSENSITIVITY
     Route: 048
  7. CRANBERRY CAPSULES [Concomitant]
     Indication: PROPHYLAXIS
     Route: 048
  8. CRANBERRY CAPSULES [Concomitant]
     Indication: NEPHROLITHIASIS
  9. VITAMIN B-12 [Concomitant]
     Indication: MEDICAL DIET
     Route: 048
  10. METOPROLOL [Concomitant]
     Indication: CARDIAC DISORDER
     Dosage: 2-25 MG TABLETS, 1 IN 1 D
     Route: 048
  11. SIMVASTATIN [Concomitant]
     Indication: BLOOD TRIGLYCERIDES INCREASED
     Route: 048
  12. MULTI-VITAMIN [Concomitant]
     Indication: MEDICAL DIET
     Route: 048
  13. TRAMADOL HCL [Concomitant]
     Indication: PAIN MANAGEMENT
     Dosage: 2-50 MG TABLETS, 3 IN 1 D
     Route: 048

REACTIONS (2)
  - FLUSHING [None]
  - WRONG TECHNIQUE IN DRUG USAGE PROCESS [None]
